FAERS Safety Report 16651443 (Version 1)
Quarter: 2019Q3

REPORT INFORMATION
  Report Type: Spontaneous
  Country: JP (occurrence: JP)
  Receive Date: 20190731
  Receipt Date: 20190731
  Transmission Date: 20191004
  Serious: Yes (Death)
  Sender: FDA-Public Use
  Company Number: JP-ABBVIE-19K-087-2873157-00

PATIENT
  Age: 59 Year
  Sex: Female
  Weight: 53 kg

DRUGS (2)
  1. MAVIRET [Suspect]
     Active Substance: GLECAPREVIR\PIBRENTASVIR
     Indication: CHRONIC HEPATITIS C
     Route: 048
     Dates: start: 20190611, end: 20190701
  2. AMLODIPINE BESILATE [Concomitant]
     Active Substance: AMLODIPINE BESYLATE
     Indication: HYPERTENSION
     Route: 048
     Dates: start: 20190227, end: 20190701

REACTIONS (1)
  - Intra-abdominal haemorrhage [Fatal]

NARRATIVE: CASE EVENT DATE: 20190701
